FAERS Safety Report 9846927 (Version 2)
Quarter: 2014Q1

REPORT INFORMATION
  Report Type: Spontaneous
  Country: JP (occurrence: JP)
  Receive Date: 20140127
  Receipt Date: 20140206
  Transmission Date: 20141002
  Serious: Yes (Hospitalization)
  Sender: FDA-Public Use
  Company Number: JP-B.I. PHARMACEUTICALS,INC./RIDGEFIELD-2014-BI-03284NB

PATIENT
  Age: 73 Year
  Sex: Female

DRUGS (2)
  1. PRAZAXA [Suspect]
     Indication: THROMBOSIS PROPHYLAXIS
     Dosage: 300 MG
     Route: 048
     Dates: start: 20110413, end: 20120312
  2. PRAZAXA [Suspect]
     Dosage: 220 MG
     Route: 048
     Dates: start: 20120313, end: 20140113

REACTIONS (1)
  - Cerebral infarction [Unknown]
